FAERS Safety Report 9225285 (Version 4)
Quarter: 2013Q4

REPORT INFORMATION
  Report Type: Report from Study
  Country: IT (occurrence: IT)
  Receive Date: 20130411
  Receipt Date: 20131028
  Transmission Date: 20140711
  Serious: No
  Sender: FDA-Public Use
  Company Number: IT-ROCHE-1159228

PATIENT
  Age: 57 Year
  Sex: Female
  Weight: 73 kg

DRUGS (8)
  1. VEMURAFENIB [Suspect]
     Indication: METASTATIC MALIGNANT MELANOMA
     Route: 048
     Dates: start: 20120518, end: 20120629
  2. VEMURAFENIB [Suspect]
     Route: 048
     Dates: start: 20120706, end: 20130123
  3. VEMURAFENIB [Suspect]
     Route: 048
     Dates: start: 20130222
  4. DELORAZEPAM [Concomitant]
     Indication: ANXIETY
     Dosage: 15 GTT
     Route: 048
  5. DELORAZEPAM [Concomitant]
     Indication: INSOMNIA
  6. RAMIPRIL [Concomitant]
     Indication: HYPERTENSION
     Route: 065
     Dates: start: 20130129
  7. PANTOPRAZOLE [Concomitant]
     Route: 065
     Dates: start: 20130129
  8. ROSUVASTATIN [Concomitant]
     Indication: HYPERCHOLESTEROLAEMIA
     Route: 065
     Dates: start: 20130129

REACTIONS (12)
  - Rash [Recovered/Resolved]
  - Arthralgia [Recovering/Resolving]
  - Hyperkeratosis [Recovered/Resolved]
  - Photosensitivity reaction [Recovered/Resolved]
  - Dermatitis [Not Recovered/Not Resolved]
  - Skin papilloma [Recovered/Resolved]
  - Hyperkeratosis [Recovered/Resolved]
  - Vomiting [Recovered/Resolved]
  - Nausea [Recovered/Resolved]
  - Cough [Not Recovered/Not Resolved]
  - Pruritus [Not Recovered/Not Resolved]
  - Urinary tract infection [Not Recovered/Not Resolved]
